FAERS Safety Report 23906546 (Version 2)
Quarter: 2024Q2

REPORT INFORMATION
  Report Type: Spontaneous
  Country: US (occurrence: US)
  Receive Date: 20240528
  Receipt Date: 20240531
  Transmission Date: 20240715
  Serious: No
  Sender: FDA-Public Use
  Company Number: US-AMGEN-USASP2024101669

PATIENT
  Age: 43 Year
  Sex: Female

DRUGS (9)
  1. REPATHA [Suspect]
     Active Substance: EVOLOCUMAB
     Indication: Blood cholesterol increased
     Dosage: 140 MILLIGRAM, Q2WK
     Route: 058
     Dates: start: 202101
  2. REPATHA [Suspect]
     Active Substance: EVOLOCUMAB
     Indication: Low density lipoprotein abnormal
  3. CARVEDILOL [Concomitant]
     Active Substance: CARVEDILOL
     Indication: Product used for unknown indication
  4. OZEMPIC [Concomitant]
     Active Substance: SEMAGLUTIDE
     Indication: Product used for unknown indication
     Route: 050
  5. OZEMPIC [Concomitant]
     Active Substance: SEMAGLUTIDE
     Route: 050
  6. OZEMPIC [Concomitant]
     Active Substance: SEMAGLUTIDE
     Route: 050
  7. OZEMPIC [Concomitant]
     Active Substance: SEMAGLUTIDE
     Route: 050
  8. ROSUVASTATIN CALCIUM [Concomitant]
     Active Substance: ROSUVASTATIN CALCIUM
  9. ZETIA [Concomitant]
     Active Substance: EZETIMIBE

REACTIONS (6)
  - Wrong technique in product usage process [Recovered/Resolved]
  - Injection site discomfort [Recovered/Resolved]
  - Injection site pain [Recovered/Resolved]
  - Device difficult to use [Recovered/Resolved]
  - Drug dose omission by device [Unknown]
  - Fear of injection [Unknown]

NARRATIVE: CASE EVENT DATE: 20240520
